FAERS Safety Report 4655991-0 (Version None)
Quarter: 2005Q2

REPORT INFORMATION
  Report Type: 
  Country: None (occurrence: None)
  Receive Date: 20050505
  Receipt Date: 20050422
  Transmission Date: 20051028
  Serious: Yes (Death, Hospitalization)
  Sender: FDA-Public Use
  Company Number: 2005BI008172

PATIENT
  Age: 67 Year
  Sex: Male

DRUGS (8)
  1. NATALIZUMAB (NATALIZUMAB) [Suspect]
     Indication: CROHN'S DISEASE
     Dosage: 300 MG; QW; IV
     Route: 042
     Dates: end: 20050203
  2. DILTIAZEM [Concomitant]
  3. FERROUS SULFATE TAB [Concomitant]
  4. MESALAMINE [Concomitant]
  5. METOPROLOL [Concomitant]
  6. PREDNISONE [Concomitant]
  7. RAMIPRIL [Concomitant]
  8. ZOLPIDEM [Concomitant]

REACTIONS (20)
  - ACUTE MYOCARDIAL INFARCTION [None]
  - AGGRESSION [None]
  - CARDIAC ARREST [None]
  - CARDIAC TAMPONADE [None]
  - CARDIOGENIC SHOCK [None]
  - CORONARY ARTERY OCCLUSION [None]
  - DEMENTIA [None]
  - DIFFICULT TO WEAN FROM VENTILATOR [None]
  - ELECTROMECHANICAL DISSOCIATION [None]
  - HYPERHIDROSIS [None]
  - HYPERTENSION [None]
  - HYPOTENSION [None]
  - MEDIASTINAL DISORDER [None]
  - MYOCARDIAL RUPTURE [None]
  - PALLOR [None]
  - PERICARDIAL EFFUSION [None]
  - PERICARDIAL HAEMORRHAGE [None]
  - POST PROCEDURAL COMPLICATION [None]
  - RESPIRATORY ARREST [None]
  - TACHYCARDIA [None]
